FAERS Safety Report 19573951 (Version 1)
Quarter: 2021Q3

REPORT INFORMATION
  Report Type: Report from Study
  Country: BR (occurrence: BR)
  Receive Date: 20210718
  Receipt Date: 20210718
  Transmission Date: 20211014
  Serious: Yes (Other)
  Sender: FDA-Public Use
  Company Number: NVSC2021BR157862

PATIENT
  Sex: Female

DRUGS (3)
  1. COSENTYX [Concomitant]
     Active Substance: SECUKINUMAB
     Dosage: 150 MG, Q2W, EVERY 15 WEEKS (PEN)
     Route: 065
     Dates: start: 20210314
  2. ADALIMUMAB [Suspect]
     Active Substance: ADALIMUMAB
     Indication: PRODUCT USED FOR UNKNOWN INDICATION
     Dosage: UNK
     Route: 065
  3. COSENTYX [Concomitant]
     Active Substance: SECUKINUMAB
     Indication: SPONDYLITIS
     Dosage: 150 MG, QMO (EVERY 30 DAYS) (PEN)
     Route: 065
     Dates: start: 20200925, end: 20210430

REACTIONS (8)
  - Coccydynia [Recovering/Resolving]
  - Bursitis [Unknown]
  - Arthralgia [Recovering/Resolving]
  - Autoimmune disorder [Unknown]
  - Pain [Unknown]
  - Back pain [Recovering/Resolving]
  - Spinal pain [Recovering/Resolving]
  - Drug ineffective [Unknown]

NARRATIVE: CASE EVENT DATE: 2015
